FAERS Safety Report 8554595-7 (Version None)
Quarter: 2012Q3

REPORT INFORMATION
  Report Type: 
  Country: None (occurrence: None)
  Receive Date: 20120731
  Receipt Date: 20120727
  Transmission Date: 20120928
  Serious: No
  Sender: FDA-Public Use
  Company Number: US-PFIZER INC-2012183956

PATIENT

DRUGS (1)
  1. LYRICA [Suspect]
     Dosage: UNK

REACTIONS (4)
  - HEARING IMPAIRED [None]
  - ABDOMINAL DISTENSION [None]
  - VISUAL IMPAIRMENT [None]
  - PHOTOPHOBIA [None]
